FAERS Safety Report 14853539 (Version 1)
Quarter: 2018Q2

REPORT INFORMATION
  Report Type: Spontaneous
  Country: MX (occurrence: MX)
  Receive Date: 20180507
  Receipt Date: 20180507
  Transmission Date: 20180711
  Serious: Yes (Other)
  Sender: FDA-Public Use
  Company Number: MX-PFIZER INC-2018184470

PATIENT
  Age: 23 Year
  Sex: Male

DRUGS (4)
  1. ZYVOXAM [Suspect]
     Active Substance: LINEZOLID
     Indication: ACINETOBACTER INFECTION
  2. ZYVOXAM [Suspect]
     Active Substance: LINEZOLID
     Indication: NOSOCOMIAL INFECTION
     Dosage: UNK
     Route: 042
  3. ZYVOXAM [Suspect]
     Active Substance: LINEZOLID
     Indication: NOSOCOMIAL INFECTION
     Dosage: UNK
     Route: 048
  4. ZYVOXAM [Suspect]
     Active Substance: LINEZOLID
     Indication: ACINETOBACTER INFECTION

REACTIONS (8)
  - Nephritis [Unknown]
  - Chromatopsia [Unknown]
  - Incorrect drug administration duration [Unknown]
  - Dysuria [Unknown]
  - Product use in unapproved indication [Unknown]
  - Rash [Unknown]
  - Visual impairment [Unknown]
  - Skin exfoliation [Unknown]
